FAERS Safety Report 7959960-4 (Version None)
Quarter: 2011Q4

REPORT INFORMATION
  Report Type: 
  Country: None (occurrence: None)
  Receive Date: 20111206
  Receipt Date: 20111129
  Transmission Date: 20120403
  Serious: Yes (Other)
  Sender: FDA-Public Use
  Company Number: AU-ABBOTT-11P-008-0878162-00

PATIENT
  Sex: Female

DRUGS (4)
  1. ALPHAPRESS [Concomitant]
     Indication: PRODUCT USED FOR UNKNOWN INDICATION
     Dosage: 25MG MANE, 50MG NOCTE
  2. THYROXIN [Concomitant]
     Indication: PRODUCT USED FOR UNKNOWN INDICATION
  3. HUMIRA [Suspect]
     Indication: PSORIASIS
     Dosage: 2ND WEEKLY
     Dates: start: 20080826
  4. ISOPTIN [Concomitant]
     Indication: PRODUCT USED FOR UNKNOWN INDICATION

REACTIONS (3)
  - VULVAR DYSPLASIA [None]
  - ANORECTAL DISORDER [None]
  - VULVAL DISORDER [None]
